FAERS Safety Report 9743141 (Version 1)
Quarter: 2013Q4

REPORT INFORMATION
  Report Type: Spontaneous
  Country: US (occurrence: US)
  Receive Date: 20131210
  Receipt Date: 20131210
  Transmission Date: 20140711
  Serious: No
  Sender: FDA-Public Use
  Company Number: US-GILEAD-2009-0024325

PATIENT
  Age: 66 Year
  Sex: Female

DRUGS (11)
  1. LETAIRIS [Suspect]
     Indication: PULMONARY ARTERIAL HYPERTENSION
     Route: 048
  2. LETAIRIS [Suspect]
     Route: 048
     Dates: start: 20080925
  3. FERROUS SULFATE [Concomitant]
  4. PILOCARPINE [Concomitant]
  5. LEVOTHYROXINE [Concomitant]
  6. OXYBUTYNIN [Concomitant]
  7. NEXIUM [Concomitant]
  8. MACROBID [Concomitant]
  9. AMLODIPINE [Concomitant]
  10. AMITRIPTYLINE [Concomitant]
  11. LOMOTIL [Concomitant]

REACTIONS (1)
  - Bronchitis [Recovered/Resolved]
